FAERS Safety Report 4457043-1 (Version None)
Quarter: 2004Q3

REPORT INFORMATION
  Report Type: 
  Country: None (occurrence: None)
  Receive Date: 20040921
  Receipt Date: 20040908
  Transmission Date: 20050211
  Serious: Yes (Hospitalization)
  Sender: FDA-Public Use
  Company Number: S04-FRA-02216-01

PATIENT
  Age: 18 Year
  Sex: Female

DRUGS (2)
  1. CITALOPRAM HYDROBROMIDE [Suspect]
     Indication: MAJOR DEPRESSION
     Dosage: 1 TABLET QD PO
     Route: 048
     Dates: start: 20040306, end: 20040308
  2. EFFEXOR [Suspect]
     Indication: DEPRESSION
     Dates: end: 20040305

REACTIONS (2)
  - EXTRAPYRAMIDAL DISORDER [None]
  - TREMOR [None]
